FAERS Safety Report 21046896 (Version 2)
Quarter: 2022Q3

REPORT INFORMATION
  Report Type: Spontaneous
  Country: JP (occurrence: JP)
  Receive Date: 20220706
  Receipt Date: 20220722
  Transmission Date: 20221026
  Serious: Yes (Hospitalization, Other)
  Sender: FDA-Public Use
  Company Number: JP-SA-2022SA249358

PATIENT
  Age: 89 Year
  Sex: Female

DRUGS (2)
  1. GLYBURIDE [Suspect]
     Active Substance: GLYBURIDE
     Indication: Glycosylated haemoglobin increased
     Dosage: 2.5 MG
     Route: 048
     Dates: start: 202109
  2. SITAGLIPTIN PHOSPHATE [Concomitant]
     Active Substance: SITAGLIPTIN PHOSPHATE
     Indication: Diabetes mellitus
     Dosage: 50 MG
     Route: 048

REACTIONS (7)
  - Hypoglycaemic encephalopathy [Recovering/Resolving]
  - Altered state of consciousness [Recovered/Resolved]
  - Hypokinesia [Recovering/Resolving]
  - Muscle tightness [Recovering/Resolving]
  - Hyperreflexia [Recovering/Resolving]
  - Areflexia [Recovering/Resolving]
  - Fall [Unknown]

NARRATIVE: CASE EVENT DATE: 20210901
